FAERS Safety Report 21720161 (Version 1)
Quarter: 2022Q4

REPORT INFORMATION
  Report Type: Spontaneous
  Country: US (occurrence: US)
  Receive Date: 20221213
  Receipt Date: 20221213
  Transmission Date: 20230112
  Serious: Yes (Other)
  Sender: FDA-Public Use
  Company Number: US-STRIDES ARCOLAB LIMITED-2022SP012896

PATIENT
  Age: 30 Year
  Sex: Female

DRUGS (10)
  1. MYCOPHENOLATE MOFETIL [Suspect]
     Active Substance: MYCOPHENOLATE MOFETIL
     Indication: Microstomia
     Dosage: UNK
     Route: 065
  2. MYCOPHENOLATE MOFETIL [Suspect]
     Active Substance: MYCOPHENOLATE MOFETIL
     Indication: Scleroderma
  3. PREDNISOLONE [Suspect]
     Active Substance: PREDNISOLONE
     Indication: Scleroderma
     Dosage: UNK
     Route: 065
  4. PREDNISOLONE [Suspect]
     Active Substance: PREDNISOLONE
     Indication: Microstomia
  5. HYDROXYCHLOROQUINE [Suspect]
     Active Substance: HYDROXYCHLOROQUINE
     Indication: Scleroderma
     Dosage: UNK
     Route: 065
  6. HYDROXYCHLOROQUINE [Suspect]
     Active Substance: HYDROXYCHLOROQUINE
     Indication: Microstomia
  7. SILDENAFIL [Suspect]
     Active Substance: SILDENAFIL
     Indication: Scleroderma
     Dosage: UNK
     Route: 065
  8. SILDENAFIL [Suspect]
     Active Substance: SILDENAFIL
     Indication: Microstomia
  9. NINTEDANIB [Suspect]
     Active Substance: NINTEDANIB
     Indication: Scleroderma
     Dosage: UNK
     Route: 065
  10. NINTEDANIB [Suspect]
     Active Substance: NINTEDANIB
     Indication: Microstomia

REACTIONS (2)
  - Drug ineffective [Unknown]
  - Off label use [Unknown]
